FAERS Safety Report 11265162 (Version 2)
Quarter: 2015Q4

REPORT INFORMATION
  Report Type: Spontaneous
  Country: JP (occurrence: JP)
  Receive Date: 20150713
  Receipt Date: 20151109
  Transmission Date: 20160304
  Serious: Yes (Death)
  Sender: FDA-Public Use
  Company Number: JP-TEVA-575868ISR

PATIENT
  Age: 87 Year
  Sex: Female
  Weight: 42 kg

DRUGS (13)
  1. OMEPRAZOLE. [Concomitant]
     Active Substance: OMEPRAZOLE
     Indication: PROPHYLAXIS AGAINST GASTROINTESTINAL ULCER
     Dosage: 20 MILLIGRAM DAILY;
     Route: 042
     Dates: start: 20141030, end: 20141114
  2. ACELIO [Concomitant]
     Active Substance: ACETAMINOPHEN
     Indication: CANCER PAIN
     Dosage: 500 MILLIGRAM DAILY;
     Route: 042
     Dates: start: 20141105, end: 20141111
  3. FENTOS [Concomitant]
     Active Substance: FENTANYL
     Dosage: 2 MILLIGRAM DAILY;
     Route: 062
     Dates: start: 20141105, end: 20141114
  4. HOKUNALIN:TAPE [Concomitant]
     Active Substance: TULOBUTEROL
     Indication: ANGINA PECTORIS
     Dosage: 2 MILLIGRAM DAILY;
     Route: 062
     Dates: end: 20141114
  5. LASIX [Concomitant]
     Active Substance: FUROSEMIDE
     Indication: OEDEMA
     Dosage: 20 MILLIGRAM DAILY;
     Route: 042
     Dates: start: 20141030, end: 20141115
  6. OXYCODONE HYDROCHLORIDE HYDRATE [Concomitant]
     Active Substance: OXYCODONE HYDROCHLORIDE
     Indication: BREAKTHROUGH PAIN
     Dosage: 2.5 MILLIGRAM DAILY;
     Route: 048
     Dates: start: 20141105, end: 20141108
  7. ROPION [Concomitant]
     Active Substance: FLURBIPROFEN AXETIL
     Indication: CANCER PAIN
     Dosage: 50 MILLIGRAM DAILY;
     Route: 042
     Dates: start: 20141106, end: 20141115
  8. FENTOS [Concomitant]
     Active Substance: FENTANYL
     Indication: CANCER PAIN
     Dosage: 1 MILLIGRAM DAILY;
     Route: 062
     Dates: start: 20141031, end: 20141104
  9. ISOSORBIDE DINITRATE. [Concomitant]
     Active Substance: ISOSORBIDE DINITRATE
     Indication: ANGINA PECTORIS
     Dosage: 40 MILLIGRAM DAILY;
     Route: 062
     Dates: start: 20141114
  10. AMPICILLIN AND SULBACTAM [Concomitant]
     Active Substance: AMPICILLIN SODIUM\SULBACTAM SODIUM
     Indication: PYREXIA
     Dosage: 3 GRAM DAILY;
     Route: 042
     Dates: start: 20141030, end: 20141103
  11. E-FEN BUCCAL [Suspect]
     Active Substance: FENTANYL CITRATE
     Indication: BREAKTHROUGH PAIN
     Dosage: 0-150 MICROGRAM
     Route: 002
     Dates: start: 20141101, end: 20141110
  12. E-FEN BUCCAL [Suspect]
     Active Substance: FENTANYL CITRATE
     Route: 002
     Dates: start: 20141111, end: 20141114
  13. CEFOTIAM [Concomitant]
     Active Substance: CEFOTIAM
     Indication: CYSTITIS
     Dosage: 2 GRAM DAILY;
     Route: 042
     Dates: start: 20141110, end: 20141114

REACTIONS (6)
  - Dry mouth [Recovered/Resolved]
  - Cystitis [Not Recovered/Not Resolved]
  - Non-small cell lung cancer [Fatal]
  - Mucosal excoriation [Recovered/Resolved]
  - Hallucination [Not Recovered/Not Resolved]
  - Hallucination, visual [Not Recovered/Not Resolved]

NARRATIVE: CASE EVENT DATE: 20141101
